FAERS Safety Report 7034933-7 (Version None)
Quarter: 2010Q4

REPORT INFORMATION
  Report Type: 
  Country: None (occurrence: None)
  Receive Date: 20101008
  Receipt Date: 20101004
  Transmission Date: 20110411
  Serious: Yes (Death)
  Sender: FDA-Public Use
  Company Number: FR-ROCHE-730659

PATIENT
  Sex: Female

DRUGS (2)
  1. ROCEPHIN [Suspect]
     Route: 042
     Dates: start: 20100913, end: 20100914
  2. GENTAMICINE [Suspect]
     Route: 042
     Dates: start: 20100913, end: 20100914

REACTIONS (1)
  - LEUKOPENIA [None]
